FAERS Safety Report 5818421-9 (Version None)
Quarter: 2008Q3

REPORT INFORMATION
  Report Type: 
  Country: None (occurrence: None)
  Receive Date: 20080716
  Receipt Date: 20080630
  Transmission Date: 20090109
  Serious: Yes (Hospitalization)
  Sender: FDA-Public Use
  Company Number: 002#8#2008-00542

PATIENT
  Age: 15 Year
  Sex: Male
  Weight: 42 kg

DRUGS (9)
  1. OMEPRAZOLE [Suspect]
     Indication: PROPHYLAXIS AGAINST GASTROINTESTINAL ULCER
     Dosage: ORAL
     Route: 048
  2. METHOTREXATE [Suspect]
     Indication: ACUTE LYMPHOCYTIC LEUKAEMIA
     Dosage: INTRAVENOUS (NOT OTHERWISE SPECIFIED)
     Route: 042
  3. DEXAMETHASONE [Concomitant]
  4. FOLINIC ACID [Concomitant]
  5. CYCLOPHOSPHAMIDE [Concomitant]
  6. VINCRISTINE [Concomitant]
  7. DAUNORUBICIN HCL [Concomitant]
  8. TRIPLE INTRATHECAL CHEMOTHERAPY [Concomitant]
  9. ELSPAR [Concomitant]

REACTIONS (3)
  - DRUG INTERACTION [None]
  - DRUG TOXICITY [None]
  - MUCOSAL INFLAMMATION [None]
